FAERS Safety Report 9747753 (Version 1)
Quarter: 2013Q4

REPORT INFORMATION
  Report Type: Spontaneous
  Country: BR (occurrence: BR)
  Receive Date: 20131212
  Receipt Date: 20131212
  Transmission Date: 20140711
  Serious: Yes (Other)
  Sender: FDA-Public Use
  Company Number: BR-ACCORD-020697

PATIENT
  Age: 65 Year
  Sex: Female
  Weight: 69 kg

DRUGS (14)
  1. PACLITAXEL [Suspect]
     Indication: CHEMOTHERAPY
     Route: 042
     Dates: start: 20130426, end: 20130809
  2. HYDROCHLOROTHIAZIDE [Concomitant]
     Route: 048
     Dates: start: 20130515, end: 20130615
  3. DEXAMETHASONE [Concomitant]
     Route: 042
     Dates: start: 20130426, end: 20130809
  4. DEXAMETHASONE [Concomitant]
     Route: 048
     Dates: start: 20130425, end: 20130812
  5. ONDANSETRON [Concomitant]
     Route: 048
     Dates: start: 20130517, end: 20130719
  6. ONDANSETRON [Concomitant]
     Route: 042
     Dates: start: 20130426, end: 20130809
  7. METACLOPRAMIDE [Concomitant]
     Route: 048
     Dates: start: 20130515, end: 20130525
  8. OMEPRAZOLE [Concomitant]
     Route: 048
     Dates: start: 20130515, end: 20130616
  9. RANITIDINE [Concomitant]
     Route: 042
     Dates: start: 20130426, end: 20130809
  10. DIPYRONE [Concomitant]
     Dosage: DOSE: 40 GTS
     Route: 048
     Dates: start: 20130515, end: 20130615
  11. DIPHENHYDRAMINE [Concomitant]
     Route: 042
     Dates: start: 20130426, end: 20130809
  12. AMLODIPINE [Concomitant]
     Route: 048
     Dates: start: 20130515, end: 20130615
  13. CARBOPLATIN [Concomitant]
     Indication: ENDOMETRIAL ADENOCARCINOMA
     Route: 042
     Dates: start: 20130426, end: 20130809
  14. ATENOLOL [Concomitant]
     Route: 048
     Dates: start: 20130515, end: 20130615

REACTIONS (2)
  - Respiratory distress [Recovered/Resolved]
  - Flushing [Recovered/Resolved]
